FAERS Safety Report 24392748 (Version 3)
Quarter: 2025Q3

REPORT INFORMATION
  Report Type: Report from Study
  Country: CA (occurrence: CA)
  Receive Date: 20241003
  Receipt Date: 20250803
  Transmission Date: 20251021
  Serious: Yes (Other)
  Sender: ALEXION PHARMACEUTICALS
  Company Number: CA-AstraZeneca-CH-00710353A

PATIENT
  Age: 57 Year
  Sex: Female

DRUGS (3)
  1. SOLIRIS [Suspect]
     Active Substance: ECULIZUMAB
     Indication: Neuromyelitis optica spectrum disorder
     Dates: start: 20200407, end: 20200428
  2. SOLIRIS [Suspect]
     Active Substance: ECULIZUMAB
     Dates: start: 20200505, end: 20200505
  3. SOLIRIS [Suspect]
     Active Substance: ECULIZUMAB
     Dosage: 1200 MILLIGRAM, Q2W
     Dates: start: 20200519

REACTIONS (2)
  - Head injury [Unknown]
  - Concussion [Unknown]

NARRATIVE: CASE EVENT DATE: 20240101
